FAERS Safety Report 7424957-X (Version None)
Quarter: 2011Q2

REPORT INFORMATION
  Report Type: 
  Country: None (occurrence: None)
  Receive Date: 20110419
  Receipt Date: 20110418
  Transmission Date: 20111010
  Serious: Yes (Hospitalization)
  Sender: FDA-Public Use
  Company Number: PHHO2010FR05373

PATIENT
  Sex: Female
  Weight: 85 kg

DRUGS (3)
  1. EVEROLIMUS [Suspect]
     Indication: BREAST CANCER
     Dosage: 10 MG
     Route: 048
     Dates: start: 20091028, end: 20100309
  2. TRASTUZUMAB [Concomitant]
  3. PACLITAXEL [Concomitant]

REACTIONS (2)
  - PNEUMONIA PNEUMOCOCCAL [None]
  - LUNG DISORDER [None]
